FAERS Safety Report 8973595 (Version 2)
Quarter: 2013Q1

REPORT INFORMATION
  Report Type: Spontaneous
  Country: AU (occurrence: AU)
  Receive Date: 20121218
  Receipt Date: 20130114
  Transmission Date: 20140127
  Serious: Yes (Hospitalization)
  Sender: FDA-Public Use
  Company Number: AU-CELGENEUS-008-20785-12120811

PATIENT
  Age: 84 Year
  Sex: Male

DRUGS (2)
  1. THALOMID [Suspect]
     Indication: PLASMA CELL MYELOMA
     Dosage: 100 MILLIGRAM
     Route: 048
     Dates: start: 20121031
  2. THALOMID [Suspect]
     Dosage: 50 MILLIGRAM
     Route: 048
     Dates: start: 201212

REACTIONS (2)
  - Non-Hodgkin^s lymphoma [Recovered/Resolved]
  - Constipation [Recovered/Resolved]
